FAERS Safety Report 5838385-1 (Version None)
Quarter: 2008Q3

REPORT INFORMATION
  Report Type: 
  Country: None (occurrence: None)
  Receive Date: 20080806
  Receipt Date: 20080725
  Transmission Date: 20090109
  Serious: Yes (Other)
  Sender: FDA-Public Use
  Company Number: 2008US001969

PATIENT
  Age: 64 Year
  Sex: Male

DRUGS (1)
  1. ADENOSCAN [Suspect]
     Indication: SCAN MYOCARDIAL PERFUSION
     Dosage: D, IV NOS
     Route: 042
     Dates: start: 20080701

REACTIONS (1)
  - ELECTROCARDIOGRAM CHANGE [None]
